FAERS Safety Report 5488905-4 (Version None)
Quarter: 2007Q4

REPORT INFORMATION
  Report Type: 
  Country: None (occurrence: None)
  Receive Date: 20071015
  Receipt Date: 20070624
  Transmission Date: 20080405
  Serious: No
  Sender: FDA-Public Use
  Company Number: 2007SP002336

PATIENT
  Age: 36 Year
  Sex: Male
  Weight: 77.1115 kg

DRUGS (3)
  1. LUNESTA [Suspect]
     Indication: INSOMNIA
     Dosage: ;ORAL ;ORAL
     Route: 048
     Dates: start: 20070624
  2. LUNESTA [Suspect]
     Indication: INSOMNIA
     Dosage: ;ORAL ;ORAL
     Route: 048
     Dates: start: 20070624
  3. ABILIFY [Concomitant]

REACTIONS (2)
  - DRUG INEFFECTIVE [None]
  - INITIAL INSOMNIA [None]
